FAERS Safety Report 8041858-7 (Version None)
Quarter: 2012Q1

REPORT INFORMATION
  Report Type: 
  Country: None (occurrence: None)
  Receive Date: 20120112
  Receipt Date: 20111228
  Transmission Date: 20120608
  Serious: Yes (Death)
  Sender: FDA-Public Use
  Company Number: US-UCBSA-048866

PATIENT
  Age: 21 Year
  Sex: Male

DRUGS (4)
  1. DIAZEPAM [Suspect]
     Route: 055
  2. ALPRAZOLAM [Suspect]
     Route: 055
  3. XYLENE [Suspect]
  4. TOLUENE [Suspect]
     Route: 055

REACTIONS (1)
  - DRUG ABUSE [None]
